FAERS Safety Report 5500362-8 (Version None)
Quarter: 2007Q4

REPORT INFORMATION
  Report Type: 
  Country: None (occurrence: None)
  Receive Date: 20071025
  Receipt Date: 20071025
  Transmission Date: 20080405
  Serious: Yes (Other)
  Sender: FDA-Public Use
  Company Number: None

PATIENT
  Age: 47 Year
  Sex: Female
  Weight: 65.7716 kg

DRUGS (3)
  1. FLUOXETINE [Suspect]
     Indication: DEPRESSION
     Dosage: 20MG PILL THREE TIMES PO DAILY PO
     Route: 048
     Dates: start: 20010101, end: 20070101
  2. FLUOXETINE [Suspect]
     Indication: OBSESSIVE-COMPULSIVE DISORDER
     Dosage: 20MG PILL THREE TIMES PO DAILY PO
     Route: 048
     Dates: start: 20010101, end: 20070101
  3. FLUOXETINE [Suspect]
     Indication: TRICHOTILLOMANIA
     Dosage: 20MG PILL THREE TIMES PO DAILY PO
     Route: 048
     Dates: start: 20010101, end: 20070101

REACTIONS (6)
  - CONDITION AGGRAVATED [None]
  - DEPRESSION [None]
  - OBSESSIVE-COMPULSIVE DISORDER [None]
  - SUICIDAL IDEATION [None]
  - THERAPEUTIC RESPONSE UNEXPECTED WITH DRUG SUBSTITUTION [None]
  - TRICHOTILLOMANIA [None]
